FAERS Safety Report 9507095 (Version 1)
Quarter: 2013Q3

REPORT INFORMATION
  Report Type: Spontaneous
  Country: AT (occurrence: AT)
  Receive Date: 20130909
  Receipt Date: 20130909
  Transmission Date: 20140515
  Serious: Yes (Hospitalization)
  Sender: FDA-Public Use
  Company Number: AT-SANOFI-AVENTIS-2013SA088320

PATIENT
  Age: 70 Year
  Sex: Female
  Weight: 55 kg

DRUGS (10)
  1. LASIX [Suspect]
     Indication: PRODUCT USED FOR UNKNOWN INDICATION
     Route: 065
  2. EBETREXAT [Suspect]
     Indication: RHEUMATOID ARTHRITIS
     Route: 048
     Dates: start: 200509
  3. CIMZIA [Suspect]
     Indication: RHEUMATOID ARTHRITIS
     Route: 058
     Dates: start: 201304
  4. ALLOPURINOL [Concomitant]
  5. DETRUSITOL [Concomitant]
  6. LANSOPRAZOLE [Concomitant]
  7. SIMVASTATIN [Concomitant]
  8. LERCANIDIPINE HYDROCHLORIDE [Concomitant]
  9. NEBIVOLOL [Concomitant]
  10. BONVIVA [Concomitant]

REACTIONS (4)
  - Circulatory collapse [Recovered/Resolved]
  - Gastroenteritis [Recovered/Resolved]
  - Convulsion [Recovered/Resolved]
  - Electrolyte imbalance [Recovered/Resolved]
